FAERS Safety Report 7619650-4 (Version None)
Quarter: 2011Q3

REPORT INFORMATION
  Report Type: 
  Country: None (occurrence: None)
  Receive Date: 20110719
  Receipt Date: 20110705
  Transmission Date: 20111222
  Serious: Yes (Other)
  Sender: FDA-Public Use
  Company Number: GB-RANBAXY-2011R1-45962

PATIENT
  Age: 39 Year
  Sex: Female

DRUGS (2)
  1. FERROUS SULFATE TAB [Concomitant]
     Indication: ANAEMIA
     Dosage: UNK
     Route: 048
     Dates: end: 20110516
  2. RANITIDINE [Suspect]
     Indication: PROPHYLAXIS
     Dosage: 150 MG, UNK
     Route: 048
     Dates: start: 20110615, end: 20110616

REACTIONS (2)
  - ANAPHYLACTIC REACTION [None]
  - MATERNAL EXPOSURE DURING PREGNANCY [None]
